FAERS Safety Report 11575798 (Version 1)
Quarter: 2015Q3

REPORT INFORMATION
  Report Type: Spontaneous
  Country: CA (occurrence: None)
  Receive Date: 20150929
  Receipt Date: 20150929
  Transmission Date: 20151125
  Serious: No
  Sender: FDA-Public Use
  Company Number: None

PATIENT
  Age: 60 Year
  Sex: Female
  Weight: 86.18 kg

DRUGS (6)
  1. OLMETEC [Concomitant]
     Active Substance: OLMESARTAN MEDOXOMIL
  2. CIPROLEX [Concomitant]
     Active Substance: CIPROFLOXACIN HYDROCHLORIDE
  3. CIPROFLOXACIN HYDROCHLORIDE 500 MG TERA-CIPROFLOXACIN HCL [Suspect]
     Active Substance: CIPROFLOXACIN HYDROCHLORIDE
     Indication: CYSTITIS
     Dosage: THERAPY?26-SEP-2015-27-SEP-2015
     Route: 048
     Dates: start: 20150926, end: 20150927
  4. PROBIOTICS [Concomitant]
     Active Substance: PROBIOTICS NOS
  5. WELLBUTRIN [Concomitant]
     Active Substance: BUPROPION HYDROCHLORIDE
  6. VITAMINS [Concomitant]
     Active Substance: VITAMINS

REACTIONS (6)
  - Burning sensation [None]
  - Arthralgia [None]
  - Pain in extremity [None]
  - Hypoaesthesia [None]
  - Tendon disorder [None]
  - Musculoskeletal pain [None]

NARRATIVE: CASE EVENT DATE: 20150907
